FAERS Safety Report 26151890 (Version 1)
Quarter: 2025Q4

REPORT INFORMATION
  Report Type: Report from Study
  Country: TW (occurrence: TW)
  Receive Date: 20251214
  Receipt Date: 20251214
  Transmission Date: 20260117
  Serious: Yes (Death, Life-Threatening, Hospitalization)
  Sender: ABBVIE
  Company Number: TW-ABBVIE-6585451

PATIENT
  Age: 55 Year
  Sex: Male
  Weight: 86 kg

DRUGS (7)
  1. ATOGEPANT [Suspect]
     Active Substance: ATOGEPANT
     Indication: Migraine without aura
     Route: 048
     Dates: start: 20250606
  2. VALPROATE SODIUM [Concomitant]
     Active Substance: VALPROATE SODIUM
     Indication: Migraine
     Route: 048
     Dates: start: 20241111
  3. EMGALITY [Concomitant]
     Active Substance: GALCANEZUMAB-GNLM
     Indication: Migraine
     Dosage: 120 MG/ML/DAY
     Route: 058
     Dates: start: 20250305
  4. LACTAM [Concomitant]
     Indication: Migraine
     Dosage: TIME INTERVAL: AS NECESSARY
     Route: 048
     Dates: start: 20240529
  5. CLOPIDOGREL [Concomitant]
     Active Substance: CLOPIDOGREL BISULFATE
     Indication: Hyperlipidaemia
     Route: 048
     Dates: start: 20241111
  6. SMILON [Concomitant]
     Indication: Depression
     Dosage: EVERY NIGHT
     Route: 048
     Dates: start: 20250502
  7. BOTOX [Concomitant]
     Active Substance: ONABOTULINUMTOXINA
     Indication: Migraine
     Dosage: 1 U
     Route: 030
     Dates: start: 20240919

REACTIONS (1)
  - Myocardial infarction [Fatal]

NARRATIVE: CASE EVENT DATE: 20251203
